FAERS Safety Report 8379705-6 (Version None)
Quarter: 2012Q2

REPORT INFORMATION
  Report Type: 
  Country: None (occurrence: None)
  Receive Date: 20120523
  Receipt Date: 20120521
  Transmission Date: 20120825
  Serious: Yes (Hospitalization)
  Sender: FDA-Public Use
  Company Number: DE-ABBOTT-11P-062-0885312-00

PATIENT
  Sex: Female

DRUGS (2)
  1. HUMIRA [Suspect]
     Indication: JUVENILE ARTHRITIS
     Route: 058
     Dates: start: 20090301, end: 20111001
  2. HUMIRA [Suspect]
     Dates: start: 20120119

REACTIONS (5)
  - SWELLING [None]
  - WOUND SECRETION [None]
  - WOUND COMPLICATION [None]
  - IMPAIRED HEALING [None]
  - POST PROCEDURAL INFECTION [None]
